FAERS Safety Report 10567899 (Version 1)
Quarter: 2014Q4

REPORT INFORMATION
  Report Type: Spontaneous
  Country: IT (occurrence: IT)
  Receive Date: 20141106
  Receipt Date: 20141106
  Transmission Date: 20150529
  Serious: Yes (Hospitalization)
  Sender: FDA-Public Use
  Company Number: IT-JNJFOC-20141019146

PATIENT
  Age: 20 Year
  Sex: Male
  Weight: 90 kg

DRUGS (3)
  1. DEPAKENE [Interacting]
     Active Substance: VALPROIC ACID
     Indication: PSYCHOTIC DISORDER
     Route: 048
  2. DELORAZEPAM [Interacting]
     Active Substance: DELORAZEPAM
     Indication: PSYCHOTIC DISORDER
     Route: 048
  3. HALDOL [Suspect]
     Active Substance: HALOPERIDOL
     Indication: PSYCHOTIC DISORDER
     Route: 048

REACTIONS (4)
  - Dystonia [Recovered/Resolved with Sequelae]
  - Hypertonia [Recovered/Resolved with Sequelae]
  - Drug interaction [Unknown]
  - Electrocardiogram change [Unknown]

NARRATIVE: CASE EVENT DATE: 20140116
